FAERS Safety Report 7430697-3 (Version None)
Quarter: 2011Q2

REPORT INFORMATION
  Report Type: 
  Country: None (occurrence: None)
  Receive Date: 20110421
  Receipt Date: 20100511
  Transmission Date: 20111010
  Serious: No
  Sender: FDA-Public Use
  Company Number: US-ASTRAZENECA-2010SE21463

PATIENT
  Age: 68 Year
  Sex: Male
  Weight: 124.7 kg

DRUGS (3)
  1. DARVON [Concomitant]
     Indication: HYPERTENSION
  2. ACETAMINOPHEN [Concomitant]
  3. METOPROLOL SUCCINATE [Suspect]
     Route: 048
     Dates: start: 20070801, end: 20080801

REACTIONS (2)
  - ARTHRALGIA [None]
  - MYALGIA [None]
